FAERS Safety Report 5095284-3 (Version None)
Quarter: 2006Q3

REPORT INFORMATION
  Report Type: 
  Country: None (occurrence: None)
  Receive Date: 20060901
  Receipt Date: 20060825
  Transmission Date: 20061208
  Serious: Yes (Hospitalization)
  Sender: FDA-Public Use
  Company Number: PHRM2006FR02419

PATIENT
  Age: 31 Year
  Sex: Male
  Weight: 115 kg

DRUGS (4)
  1. LAMISIL [Suspect]
     Indication: DERMATITIS CONTACT
     Dosage: 250 MG, QD
     Route: 048
     Dates: start: 20060307, end: 20060328
  2. BETNEVAL [Suspect]
     Indication: DERMATITIS CONTACT
     Route: 061
     Dates: start: 20060307, end: 20060328
  3. MYCOSTER [Suspect]
     Indication: SKIN DISORDER
     Route: 061
     Dates: start: 20060307, end: 20060328
  4. FLUTICASONE PROPIONATE (FLIXOVATE) [Suspect]
     Indication: DERMATITIS CONTACT
     Route: 061
     Dates: start: 20060307, end: 20060328

REACTIONS (9)
  - ALANINE AMINOTRANSFERASE INCREASED [None]
  - C-REACTIVE PROTEIN INCREASED [None]
  - ECZEMA [None]
  - EOSINOPHILIA [None]
  - ERYTHEMA MULTIFORME [None]
  - HYPERKERATOSIS PALMARIS AND PLANTARIS [None]
  - LEUKOCYTOSIS [None]
  - PSORIASIS [None]
  - RED BLOOD CELL SEDIMENTATION RATE INCREASED [None]
